FAERS Safety Report 6315137-X (Version None)
Quarter: 2009Q3

REPORT INFORMATION
  Report Type: 
  Country: None (occurrence: None)
  Receive Date: 20090817
  Receipt Date: 20090811
  Transmission Date: 20100115
  Serious: Yes (Other)
  Sender: FDA-Public Use
  Company Number: 2009SP019508

PATIENT
  Age: 56 Year
  Sex: Female

DRUGS (3)
  1. RIBAVIRIN [Suspect]
     Indication: HEPATITIS C
     Dosage: 1000 MG; QD; PO;  750 MG; QD; PO
     Route: 048
  2. PEGYLATED INTERFERON ALFA 2 A (PEGINTERFERON ALFA-2A) [Suspect]
     Indication: HEPATITIS C
     Dosage: 180 MCG; QW; SC ; 90 MCG; QW; SC
     Route: 058
  3. TIROXIN  /00068002/ [Concomitant]

REACTIONS (2)
  - DRUG INEFFECTIVE [None]
  - ORAL LICHEN PLANUS [None]
